FAERS Safety Report 18856040 (Version 2)
Quarter: 2021Q1

REPORT INFORMATION
  Report Type: Spontaneous
  Country: NL (occurrence: NL)
  Receive Date: 20210206
  Receipt Date: 20210329
  Transmission Date: 20210420
  Serious: Yes (Other)
  Sender: FDA-Public Use
  Company Number: NL-AMGEN-NLDSP2021019217

PATIENT

DRUGS (2)
  1. TALIMOGENE LAHERPAREPVEC [Suspect]
     Active Substance: TALIMOGENE LAHERPAREPVEC
     Indication: METASTATIC MALIGNANT MELANOMA
     Dosage: UNK (106 PLAQUE?FORMING UNITS (PFU)/ML)
     Route: 065
  2. TALIMOGENE LAHERPAREPVEC [Suspect]
     Active Substance: TALIMOGENE LAHERPAREPVEC
     Dosage: UNK (108  PFU/ML  EVERY 2 WEEKS, SECOND DOSE WAS ADMINISTERED 3 WEEKS AFTER THE INITIAL DOSE)
     Route: 065

REACTIONS (23)
  - Cough [Unknown]
  - Myalgia [Unknown]
  - Dyspnoea [Unknown]
  - Decreased appetite [Unknown]
  - Chills [Unknown]
  - Fatigue [Unknown]
  - Headache [Unknown]
  - Arthralgia [Unknown]
  - Metastatic malignant melanoma [Unknown]
  - Injection site pain [Unknown]
  - Diarrhoea [Unknown]
  - Pyrexia [Unknown]
  - Cellulitis [Unknown]
  - Therapy partial responder [Unknown]
  - Oedema peripheral [Unknown]
  - Colitis [Recovered/Resolved]
  - Injection site pruritus [Unknown]
  - Injection site erythema [Unknown]
  - Nausea [Unknown]
  - Pain in extremity [Unknown]
  - Dizziness [Unknown]
  - Influenza like illness [Unknown]
  - Vomiting [Unknown]
